FAERS Safety Report 7438291-5 (Version None)
Quarter: 2011Q2

REPORT INFORMATION
  Report Type: 
  Country: None (occurrence: None)
  Receive Date: 20110426
  Receipt Date: 20110414
  Transmission Date: 20111010
  Serious: Yes (Life-Threatening, Hospitalization, Disabling, Other)
  Sender: FDA-Public Use
  Company Number: US-BAYER-2011-032935

PATIENT
  Age: 40 Year
  Sex: Female

DRUGS (3)
  1. CIPRO [Suspect]
     Indication: GASTROENTERITIS VIRAL
     Dosage: UNK, BID
     Route: 048
  2. ANTIHYPERTENSIVES [Concomitant]
  3. ANTIBIOTICS [Concomitant]

REACTIONS (4)
  - NIGHT SWEATS [None]
  - VISION BLURRED [None]
  - HYPOAESTHESIA [None]
  - DIZZINESS [None]
